FAERS Safety Report 5317457-4 (Version None)
Quarter: 2007Q2

REPORT INFORMATION
  Report Type: 
  Country: None (occurrence: None)
  Receive Date: 20070507
  Receipt Date: 20070430
  Transmission Date: 20071010
  Serious: Yes (Other)
  Sender: FDA-Public Use
  Company Number: PHEH2007US03850

PATIENT
  Age: 67 Year
  Sex: Female
  Weight: 86.167 kg

DRUGS (11)
  1. ZELNORM [Suspect]
     Dosage: 6 MG, BID
     Route: 048
     Dates: start: 20051101, end: 20070201
  2. TRICOR [Concomitant]
     Dosage: 145 MG, QD
     Route: 048
  3. NEURONTIN [Concomitant]
     Dosage: 400 MG, BID
     Route: 048
  4. ACETYLSALICYLIC ACID SRT [Concomitant]
     Dosage: 325 MG, QD
     Route: 048
  5. TRAZODONE HCL [Concomitant]
     Dosage: 50 MG, QD
     Route: 048
  6. EFFEXOR XR [Concomitant]
     Dosage: 375 MG, QD
     Route: 048
  7. DIOVAN HCT [Concomitant]
     Dosage: 160/12.5 MG BID
     Route: 048
  8. COREG [Concomitant]
     Dosage: 12.5 MG, BID
     Route: 048
  9. SIMVASTATIN [Concomitant]
     Dosage: 40 MG, QD
     Route: 048
  10. DYNACIRC [Concomitant]
     Dosage: 5 MG, QD
     Route: 048
  11. HUMULIN R [Concomitant]
     Dosage: 75/25

REACTIONS (2)
  - PALPITATIONS [None]
  - VENTRICULAR EXTRASYSTOLES [None]
